FAERS Safety Report 4753954-8 (Version None)
Quarter: 2005Q3

REPORT INFORMATION
  Report Type: 
  Country: None (occurrence: None)
  Receive Date: 20050826
  Receipt Date: 20050811
  Transmission Date: 20060218
  Serious: Yes (Disabling)
  Sender: FDA-Public Use
  Company Number: 002#4#2003-00381

PATIENT
  Age: 46 Year
  Sex: Female

DRUGS (3)
  1. CHLORPHENIRAMINE MALEATE AND PHENYLPROPANOLAMINE HCL [Suspect]
     Dosage: ORAL
     Route: 048
  2. ALKA-SELTZER-PLUS-COLD [Suspect]
     Dosage: ORAL
     Route: 048
  3. BC-POWDER [Suspect]
     Dosage: ORAL
     Route: 048

REACTIONS (3)
  - BLOOD PRESSURE INCREASED [None]
  - CEREBROVASCULAR ACCIDENT [None]
  - MYOCARDIAL INFARCTION [None]
